FAERS Safety Report 9787065 (Version 2)
Quarter: 2014Q1

REPORT INFORMATION
  Report Type: Report from Study
  Country: IT (occurrence: IT)
  Receive Date: 20131227
  Receipt Date: 20140307
  Transmission Date: 20141002
  Serious: Yes (Other)
  Sender: FDA-Public Use
  Company Number: IT-ROCHE-1324459

PATIENT
  Sex: Male
  Weight: 108 kg

DRUGS (3)
  1. BEVACIZUMAB [Suspect]
     Indication: COLORECTAL CANCER
     Dosage: DATE OF LAST DOSE:27/JUN/2013
     Route: 065
     Dates: start: 20130321, end: 2013
  2. CAPECITABINE [Suspect]
     Indication: COLORECTAL CANCER
     Dosage: LAST DOSE:10/JUL/2013
     Route: 065
     Dates: start: 20130321, end: 2013
  3. OXALIPLATIN [Suspect]
     Indication: COLORECTAL CANCER
     Dosage: LAST DOSE:27/JUN/2013
     Route: 065
     Dates: start: 20130321, end: 2013

REACTIONS (1)
  - Renal failure acute [Unknown]
